FAERS Safety Report 19924165 (Version 1)
Quarter: 2021Q4

REPORT INFORMATION
  Report Type: Spontaneous
  Country: JP (occurrence: JP)
  Receive Date: 20211005
  Receipt Date: 20211005
  Transmission Date: 20220303
  Serious: Yes (Hospitalization)
  Sender: FDA-Public Use
  Company Number: JP-ASTRAZENECA-202177798_070810_P_1

PATIENT
  Age: 11 Month
  Sex: Female

DRUGS (1)
  1. SYNAGIS [Suspect]
     Active Substance: PALIVIZUMAB
     Indication: Trisomy 21
     Dosage: DOSE UNKNOWN?PALIVIZUMAB(GENETICAL RECOMBINATION):50MG
     Route: 030

REACTIONS (1)
  - Bronchitis [Recovering/Resolving]
